FAERS Safety Report 17372754 (Version 7)
Quarter: 2021Q2

REPORT INFORMATION
  Report Type: Report from Study
  Country: DE (occurrence: DE)
  Receive Date: 20200205
  Receipt Date: 20210408
  Transmission Date: 20210716
  Serious: Yes (Hospitalization, Other)
  Sender: FDA-Public Use
  Company Number: DE-MYLANLABS-2020M1012929

PATIENT
  Age: 59 Year
  Sex: Female

DRUGS (14)
  1. OCREVUS [Suspect]
     Active Substance: OCRELIZUMAB
     Dosage: 197 DAYS 4TH MAINTENANCE DOSE 08/MAY/2020: 600 MG
     Route: 042
     Dates: start: 20180314
  2. FAMPYRA [Concomitant]
     Active Substance: DALFAMPRIDINE
     Dosage: 2 DOSAGE FORM, QD
     Route: 065
  3. FAMPYRA [Concomitant]
     Active Substance: DALFAMPRIDINE
     Dosage: 1?0?1
     Route: 065
  4. BACLOFEN. [Suspect]
     Active Substance: BACLOFEN
     Indication: MUSCLE SPASTICITY
     Dosage: UNK
     Route: 065
     Dates: start: 201904, end: 2019
  5. OCREVUS [Suspect]
     Active Substance: OCRELIZUMAB
     Indication: PRIMARY PROGRESSIVE MULTIPLE SCLEROSIS
     Dosage: 600 MILLIGRAM, (197 DAYS), NEXT DOSE: 600 MG ON AN UNKNOWN DATE, 08/MAY/2020
     Route: 042
     Dates: start: 20180304
  6. OCREVUS [Suspect]
     Active Substance: OCRELIZUMAB
     Dosage: 600 MILLIGRAM 4TH MAINTENANCE DOSE
     Route: 042
     Dates: start: 20200508
  7. SIRDALUD [Concomitant]
     Active Substance: TIZANIDINE
     Dosage: 1 MILLIGRAM, QD
  8. SIRDALUD [Concomitant]
     Active Substance: TIZANIDINE
     Dosage: 1 MILLIGRAM, Q4H
  9. PARACETAMOL [Concomitant]
     Active Substance: ACETAMINOPHEN
     Indication: PREMEDICATION
     Dosage: UNK
  10. L?THYROXIN                         /00068001/ [Concomitant]
     Active Substance: LEVOTHYROXINE
     Dosage: 100 MICROGRAM, QD
  11. METHYLPREDNISOLON                  /00049601/ [Concomitant]
     Active Substance: METHYLPREDNISOLONE
     Indication: PREMEDICATION
     Dosage: UNK
  12. FAMPYRA [Concomitant]
     Active Substance: DALFAMPRIDINE
     Dosage: 0.5 MILLIGRAM, QD
     Route: 065
  13. OCREVUS [Suspect]
     Active Substance: OCRELIZUMAB
     Dosage: 300 MILLIGRAM(26/SEP/2018: 600 MG)
     Route: 042
     Dates: start: 20180314
  14. FAMPYRA [Concomitant]
     Active Substance: DALFAMPRIDINE
     Dosage: UNK, BID

REACTIONS (23)
  - Hypoaesthesia [Not Recovered/Not Resolved]
  - Tooth infection [Recovered/Resolved]
  - Spondylolisthesis [Not Recovered/Not Resolved]
  - Intervertebral disc protrusion [Not Recovered/Not Resolved]
  - Balance disorder [Not Recovered/Not Resolved]
  - Nasopharyngitis [Recovering/Resolving]
  - Cervical vertebral fracture [Recovered/Resolved]
  - Bone cyst [Unknown]
  - Sleep disorder [Not Recovered/Not Resolved]
  - Feeling cold [Not Recovered/Not Resolved]
  - Gait disturbance [Not Recovered/Not Resolved]
  - Peroneal nerve palsy [Not Recovered/Not Resolved]
  - Depression [Recovering/Resolving]
  - Ligament injury [Not Recovered/Not Resolved]
  - Spinal disorder [Unknown]
  - Rhinorrhoea [Recovered/Resolved]
  - Fatigue [Recovered/Resolved]
  - Panic attack [Recovering/Resolving]
  - Pain [Recovered/Resolved]
  - Fall [Unknown]
  - Muscle spasticity [Recovered/Resolved]
  - Urticaria [Recovered/Resolved]
  - Anxiety [Recovering/Resolving]

NARRATIVE: CASE EVENT DATE: 20180315
